FAERS Safety Report 6078567 (Version 2)
Quarter: 2019Q1

REPORT INFORMATION
  Report Type: Spontaneous
  Country: FR (occurrence: FR)
  Receive Date: 20060707
  Receipt Date: 20190201
  Transmission Date: 20190418
  Serious: Yes (Disabling, Other)
  Sender: FDA-Public Use
  Company Number: FR-GILEAD-2006-0009823

PATIENT
  Age: 50 Year
  Sex: Female
  Weight: 45 kg

DRUGS (3)
  1. SUSTIVA [Concomitant]
     Active Substance: EFAVIRENZ
  2. EPIVIR [Concomitant]
     Active Substance: LAMIVUDINE
  3. VIREAD [Suspect]
     Active Substance: TENOFOVIR DISOPROXIL FUMARATE
     Indication: HIV INFECTION
     Route: 048
     Dates: start: 20021008, end: 20060413

REACTIONS (4)
  - Hyperphosphaturia [Unknown]
  - Osteoporosis [Recovering/Resolving]
  - Osteomalacia [Recovering/Resolving]
  - Renal tubular dysfunction [Recovering/Resolving]
